FAERS Safety Report 5528880-7 (Version None)
Quarter: 2007Q4

REPORT INFORMATION
  Report Type: 
  Country: None (occurrence: None)
  Receive Date: 20071113
  Receipt Date: 20071009
  Transmission Date: 20080405
  Serious: No
  Sender: FDA-Public Use
  Company Number: 200713132US

PATIENT
  Age: 67 Year
  Sex: Female

DRUGS (17)
  1. APIDRA [Suspect]
     Indication: TYPE 2 DIABETES MELLITUS
     Dosage: 5-7 INJ
     Route: 042
     Dates: start: 20070301
  2. PREDNISONE [Concomitant]
  3. TENORMIN [Concomitant]
  4. HYDRALAZINE HYDROCHLORIDE (HYDRALAZIN) [Concomitant]
  5. VALSARTAN (DIOVANE) [Concomitant]
  6. LASIX [Concomitant]
  7. SPIRONOLACTONE (ALDACTONE /00006201/) [Concomitant]
  8. POTASSIUM CHLORIDE (KLOR-CON) [Concomitant]
  9. PARACETAMOL, DEXTROPROPOXYPHENE NAPSILATE (DARVOCET-N) [Concomitant]
  10. FENTANYL (DURAGESIC /00174601/) [Concomitant]
  11. GLYCERYL TRINITRATE (TRANSDERM PATCH) [Concomitant]
  12. ESTROGEN NOS /03913201/) [Concomitant]
  13. UBIDECARENONE, LEVOCARNITINE (COENZYME Q10 /03913201/) [Concomitant]
  14. VITAMIN D [Concomitant]
  15. VITAMINS NOS (MVI) [Concomitant]
  16. FISH OIL [Concomitant]
  17. LOPERAMIDE HYDROCHLORIDE (IMODIUM /00384302/) [Concomitant]

REACTIONS (3)
  - HEADACHE [None]
  - MYDRIASIS [None]
  - PHOTOSENSITIVITY REACTION [None]
